FAERS Safety Report 8193464 (Version 7)
Quarter: 2013Q4

REPORT INFORMATION
  Report Type: Spontaneous
  Country: US (occurrence: US)
  Receive Date: 20111021
  Receipt Date: 20131003
  Transmission Date: 20140711
  Serious: Yes (Other)
  Sender: FDA-Public Use
  Company Number: US-PFIZER INC-2011250544

PATIENT
  Sex: Male

DRUGS (2)
  1. VISTARIL [Suspect]
     Dosage: UNK
     Route: 042
  2. VISTARIL [Suspect]
     Dosage: UNK
     Route: 042

REACTIONS (4)
  - Incorrect route of drug administration [Unknown]
  - Injection site pain [Unknown]
  - Vein disorder [Unknown]
  - Thrombosis [Unknown]
